FAERS Safety Report 24316492 (Version 1)
Quarter: 2024Q3

REPORT INFORMATION
  Report Type: Report from Study
  Country: US (occurrence: US)
  Receive Date: 20240913
  Receipt Date: 20240913
  Transmission Date: 20241017
  Serious: Yes (Other)
  Sender: JOHNSON AND JOHNSON
  Company Number: US-JNJFOC-20240927908

PATIENT
  Age: 62 Year

DRUGS (1)
  1. TALVEY [Suspect]
     Active Substance: TALQUETAMAB-TGVS
     Indication: Plasma cell myeloma
     Route: 058

REACTIONS (4)
  - Pyrexia [Recovered/Resolved]
  - Ageusia [Recovering/Resolving]
  - Weight decreased [Unknown]
  - Nail disorder [Recovering/Resolving]
